FAERS Safety Report 10567055 (Version 6)
Quarter: 2016Q1

REPORT INFORMATION
  Report Type: Spontaneous
  Country: IT (occurrence: IT)
  Receive Date: 20141105
  Receipt Date: 20160229
  Transmission Date: 20160525
  Serious: Yes (Life-Threatening, Hospitalization, Other)
  Sender: FDA-Public Use
  Company Number: PHHY2014IT137514

PATIENT
  Age: 50 Year
  Sex: Female

DRUGS (5)
  1. LUCEN [Concomitant]
     Active Substance: ESOMEPRAZOLE
     Indication: PRODUCT USED FOR UNKNOWN INDICATION
     Dosage: 20 MG, QD (08.00 A.M.)
     Route: 048
     Dates: end: 20140930
  2. TARGIN [Concomitant]
     Active Substance: NALOXONE HYDROCHLORIDE\OXYCODONE HYDROCHLORIDE
     Indication: PRODUCT USED FOR UNKNOWN INDICATION
     Route: 065
  3. GILENYA [Suspect]
     Active Substance: FINGOLIMOD HYDROCHLORIDE
     Indication: MULTIPLE SCLEROSIS
     Dosage: 0.5 MG, QD
     Route: 048
     Dates: start: 20120808, end: 20140601
  4. SEROPRAM [Concomitant]
     Active Substance: CITALOPRAM HYDROBROMIDE
     Indication: PRODUCT USED FOR UNKNOWN INDICATION
     Dosage: 10 GTT, QD (08.00 A.M.)
     Route: 065
     Dates: end: 20141030
  5. LIORESAL [Concomitant]
     Active Substance: BACLOFEN
     Indication: PRODUCT USED FOR UNKNOWN INDICATION
     Dosage: 25 MG, TID (08:00 A.M., 02:00 P.M. AND 08:00 P.M.)
     Route: 048

REACTIONS (20)
  - Abdominal discomfort [Unknown]
  - Red blood cell sedimentation rate increased [Unknown]
  - Lymphoproliferative disorder [Unknown]
  - Scoliosis [Unknown]
  - Rectal ulcer [Unknown]
  - Uterine leiomyoma [Unknown]
  - Faecaloma [Unknown]
  - Blood pressure decreased [Unknown]
  - Abdominal pain [Recovering/Resolving]
  - Anaemia [Unknown]
  - Intervertebral disc protrusion [Unknown]
  - C-reactive protein increased [Unknown]
  - Demyelination [Unknown]
  - Bacteriuria [Unknown]
  - Extranodal marginal zone B-cell lymphoma (MALT type) [Recovered/Resolved]
  - Constipation [Unknown]
  - Ovarian enlargement [Unknown]
  - Colitis [Unknown]
  - Emotional disorder [Unknown]
  - Breath sounds abnormal [Unknown]

NARRATIVE: CASE EVENT DATE: 20140523
